FAERS Safety Report 4969413-3 (Version None)
Quarter: 2006Q2

REPORT INFORMATION
  Report Type: 
  Country: None (occurrence: None)
  Receive Date: 20060405
  Receipt Date: 20060321
  Transmission Date: 20061013
  Serious: Yes (Hospitalization)
  Sender: FDA-Public Use
  Company Number: 2006US-01828

PATIENT
  Age: 77 Year
  Sex: Female

DRUGS (6)
  1. LORAZEPAM [Suspect]
     Dosage: 0.5 MG, QID, ORAL
     Route: 048
     Dates: start: 20060308, end: 20060310
  2. NOVOLOG MIX 70/30 [Concomitant]
  3. TOPROL-XL [Concomitant]
  4. LISINOPRIL [Concomitant]
  5. COMTAN [Concomitant]
  6. CARBIDOPA AND LEVODOPA [Concomitant]

REACTIONS (7)
  - DIABETIC COMA [None]
  - DISORIENTATION [None]
  - HYPERSOMNIA [None]
  - LIP DISCOLOURATION [None]
  - PALLOR [None]
  - SOMNOLENCE [None]
  - SYNCOPE [None]
